FAERS Safety Report 23498808 (Version 2)
Quarter: 2024Q1

REPORT INFORMATION
  Report Type: Spontaneous
  Country: US (occurrence: US)
  Receive Date: 20240208
  Receipt Date: 20240212
  Transmission Date: 20240409
  Serious: Yes (Hospitalization)
  Sender: FDA-Public Use
  Company Number: US-ABBVIE-5627738

PATIENT
  Age: 62 Year
  Weight: 91 kg

DRUGS (3)
  1. BOTOX COSMETIC [Suspect]
     Active Substance: ONABOTULINUMTOXINA
     Indication: Skin wrinkling
     Dosage: TIME INTERVAL: AS NECESSARY: 36 UNIT, FORM STRENGTH: 100 UNIT, FREQUENCY TEXT: 1ST TIME WITH THEM...
     Route: 030
     Dates: start: 20231018, end: 20231018
  2. BOTOX COSMETIC [Suspect]
     Active Substance: ONABOTULINUMTOXINA
     Indication: Skin wrinkling
     Dosage: TIME INTERVAL: AS NECESSARY: 36 UNIT, FORM STRENGTH: 100 UNIT, FREQUENCY TEXT: 1ST TIME WITH THEM...
     Route: 030
     Dates: start: 20231018, end: 20231018
  3. BOTOX COSMETIC [Suspect]
     Active Substance: ONABOTULINUMTOXINA
     Indication: Skin wrinkling
     Dosage: TIME INTERVAL: AS NECESSARY: 36 UNIT, FORM STRENGTH: 100 UNIT, FREQUENCY TEXT: 1ST TIME WITH THEM...
     Route: 030
     Dates: start: 20231018, end: 20231018

REACTIONS (1)
  - Botulism [Not Recovered/Not Resolved]

NARRATIVE: CASE EVENT DATE: 20240201
